FAERS Safety Report 14782493 (Version 5)
Quarter: 2019Q2

REPORT INFORMATION
  Report Type: Spontaneous
  Country: US (occurrence: US)
  Receive Date: 20180420
  Receipt Date: 20190515
  Transmission Date: 20190711
  Serious: No
  Sender: FDA-Public Use
  Company Number: US-PFIZER INC-2018128806

PATIENT
  Age: 71 Year
  Sex: Female

DRUGS (34)
  1. CITALOPRAM HCL [Concomitant]
     Active Substance: CITALOPRAM HYDROCHLORIDE
     Dosage: 20 MG, DAILY
     Route: 048
  2. GABAPENTIN. [Concomitant]
     Active Substance: GABAPENTIN
     Dosage: 800 MG, UNK
     Dates: end: 201903
  3. OMEPRAZOLE. [Concomitant]
     Active Substance: OMEPRAZOLE
     Dosage: 20 MG, DAILY
     Route: 048
  4. TRAMADOL HCL [Concomitant]
     Active Substance: TRAMADOL HYDROCHLORIDE
     Dosage: UNK
  5. HAVRIX [Concomitant]
     Active Substance: HEPATITIS A VIRUS STRAIN HM175 ANTIGEN (FORMALDEHYDE INACTIVATED)
     Indication: IMMUNISATION
     Dosage: UNK
  6. FOLIC ACID. [Concomitant]
     Active Substance: FOLIC ACID
     Dosage: 800 MG, 3X/DAY
     Route: 048
  7. METHOTREXATE. [Concomitant]
     Active Substance: METHOTREXATE
     Dosage: 25 MG, WEEKLY [TAKES 10 TABLETS OF THE 2.5MG ONCE PER WEEK]
  8. PREDNISONE. [Concomitant]
     Active Substance: PREDNISONE
     Dosage: 5 MG, WEEKLY
  9. VITAMIN B12 [Concomitant]
     Active Substance: CYANOCOBALAMIN
     Dosage: 2500 UG, UNK
     Route: 060
  10. BUMETANIDE. [Concomitant]
     Active Substance: BUMETANIDE
     Dosage: 2 MG, UNK
  11. PLAQUENIL [Concomitant]
     Active Substance: HYDROXYCHLOROQUINE SULFATE
     Dosage: 200 MG, UNK
  12. FOLIC ACID. [Concomitant]
     Active Substance: FOLIC ACID
     Dosage: 800 UG, UNK
  13. TRIAMCINOLONE ACETONIDE. [Concomitant]
     Active Substance: TRIAMCINOLONE ACETONIDE
     Dosage: 40 MG, UNK [JECT 40MG INTO THE APPROPRIATE JOINT AS DIRECTED BY PROVIDER]
  14. NYSTATIN. [Concomitant]
     Active Substance: NYSTATIN
     Dosage: UNK
  15. LIDOCAINE. [Concomitant]
     Active Substance: LIDOCAINE
     Dosage: 2 ML, UNK [INTO THE APPROPRIATE JOINT AS DIRECTED BY PROVIDER]
  16. XELJANZ XR [Suspect]
     Active Substance: TOFACITINIB CITRATE
     Dosage: 11 MG, 1X/DAY
     Dates: start: 20190424
  17. CITALOPRAM HCL [Concomitant]
     Active Substance: CITALOPRAM HYDROCHLORIDE
     Dosage: 40 MG, UNK
  18. RESTASIS [Concomitant]
     Active Substance: CYCLOSPORINE
     Dosage: UNK [EMU]
     Dates: end: 201512
  19. VITAMIN B12 [Concomitant]
     Active Substance: CYANOCOBALAMIN
     Dosage: 50 UG, DAILY
     Route: 048
  20. ATORVASTATIN [Concomitant]
     Active Substance: ATORVASTATIN
     Dosage: 20 MG, DAILY
     Route: 048
  21. CETIRIZINE HCL [Concomitant]
     Active Substance: CETIRIZINE HYDROCHLORIDE
     Dosage: 10 MG, UNK
  22. SYMBICORT [Concomitant]
     Active Substance: BUDESONIDE\FORMOTEROL FUMARATE DIHYDRATE
     Dosage: UNK (BUDESONIDE -160 UG)-(FORMOTEROL FUMARATE-4.5 UG)
  23. XELJANZ XR [Suspect]
     Active Substance: TOFACITINIB CITRATE
     Indication: RHEUMATOID ARTHRITIS
     Dosage: 11 MG, DAILY (TAKE 1 TABLET BY MOUTH EVERY DAY)
     Route: 048
     Dates: start: 201803, end: 201803
  24. BUMETANIDE. [Concomitant]
     Active Substance: BUMETANIDE
     Dosage: UNK
  25. MONTELUKAST [Concomitant]
     Active Substance: MONTELUKAST SODIUM
     Dosage: 10 MG, UNK
  26. OMEPRAZOLE. [Concomitant]
     Active Substance: OMEPRAZOLE
     Dosage: 40 MG, UNK
  27. PREDNISONE. [Concomitant]
     Active Substance: PREDNISONE
     Dosage: 2 MG, UNK
  28. VENTOLIN HFA [Concomitant]
     Active Substance: ALBUTEROL SULFATE
     Dosage: UNK [108 (90 BASE) MCG/ACT INHALER]
  29. BUPIVACAINE. [Concomitant]
     Active Substance: BUPIVACAINE
     Dosage: 5 MG, UNK [INJECT 5MG INTO THE APPROPRIATE JOINT AS DIRECTED BY PROVIDER]
  30. VITAMIN D3 [Concomitant]
     Active Substance: CHOLECALCIFEROL
     Dosage: UNK
     Route: 048
  31. XELJANZ XR [Suspect]
     Active Substance: TOFACITINIB CITRATE
     Indication: OSTEOARTHRITIS
     Dosage: 11 MG, DAILY
     Route: 048
     Dates: start: 20180316
  32. LEVOTHYROXINE. [Concomitant]
     Active Substance: LEVOTHYROXINE
     Dosage: 200 UG, UNK
  33. SYMBICORT [Concomitant]
     Active Substance: BUDESONIDE\FORMOTEROL FUMARATE DIHYDRATE
     Dosage: UNK (BUDESONIDE -80 UG)-(FORMOTEROL FUMARATE-4.5 UG)
  34. HYDROXYCHLOROQUINE [Concomitant]
     Active Substance: HYDROXYCHLOROQUINE
     Dosage: 200 MG, UNK

REACTIONS (7)
  - Dyspnoea [Not Recovered/Not Resolved]
  - Pharyngeal swelling [Unknown]
  - Chronic obstructive pulmonary disease [Not Recovered/Not Resolved]
  - Headache [Not Recovered/Not Resolved]
  - Nasal disorder [Unknown]
  - Dry mouth [Unknown]
  - Muscle spasms [Unknown]

NARRATIVE: CASE EVENT DATE: 2018
